FAERS Safety Report 16252378 (Version 1)
Quarter: 2019Q2

REPORT INFORMATION
  Report Type: Report from Study
  Country: US (occurrence: US)
  Receive Date: 20190429
  Receipt Date: 20190429
  Transmission Date: 20190711
  Serious: Yes (Other)
  Sender: FDA-Public Use
  Company Number: US-MYLANLABS-2019M1039732

PATIENT
  Age: 6 Year
  Sex: Female

DRUGS (2)
  1. METHOTREXATE. [Suspect]
     Active Substance: METHOTREXATE
     Indication: ACUTE LYMPHOCYTIC LEUKAEMIA
     Dosage: HIGH-DOSE METHOTREXATE 5 G/M2 INFUSION OVER 24H
     Route: 050
  2. DASATINIB. [Interacting]
     Active Substance: DASATINIB
     Indication: ACUTE LYMPHOCYTIC LEUKAEMIA
     Dosage: MAXIMUM 100MG
     Route: 065

REACTIONS (3)
  - Drug clearance decreased [Recovered/Resolved]
  - Drug interaction [Unknown]
  - Mucosal inflammation [Unknown]
